FAERS Safety Report 9190793 (Version 2)
Quarter: 2013Q2

REPORT INFORMATION
  Report Type: Spontaneous
  Country: GB (occurrence: GB)
  Receive Date: 20130326
  Receipt Date: 20130401
  Transmission Date: 20140414
  Serious: Yes (Other)
  Sender: FDA-Public Use
  Company Number: GB-PFIZER INC-2013094505

PATIENT
  Sex: Male

DRUGS (1)
  1. DICLOFENAC [Suspect]
     Dosage: 100 MG, UNSPECIFIED INTERVAL

REACTIONS (6)
  - Haemorrhage [Unknown]
  - HIV infection [Unknown]
  - Therapeutic response unexpected [Not Recovered/Not Resolved]
  - Gastrooesophageal reflux disease [Unknown]
  - Blood iron abnormal [Unknown]
  - Bladder disorder [Unknown]
